FAERS Safety Report 8168846-4 (Version None)
Quarter: 2012Q1

REPORT INFORMATION
  Report Type: 
  Country: None (occurrence: None)
  Receive Date: 20120227
  Receipt Date: 20120213
  Transmission Date: 20120608
  Serious: Yes (Other)
  Sender: FDA-Public Use
  Company Number: JP-CELGENEUS-087-21660-12022721

PATIENT
  Age: 46 Year
  Sex: Female

DRUGS (4)
  1. ABRAXANE [Suspect]
     Indication: BREAST CANCER METASTATIC
     Dosage: 360 MILLIGRAM
     Route: 041
     Dates: start: 20110621, end: 20111004
  2. DEXAMETHASONE SODIUM PHOSPHATE [Concomitant]
     Dosage: 6.6 MILLIGRAM
     Route: 041
     Dates: start: 20110621, end: 20111004
  3. DECADRON [Concomitant]
     Dosage: 8 MILLIGRAM
     Route: 048
     Dates: start: 20110622, end: 20111008
  4. MOTILIUM [Concomitant]
     Dosage: 30 MILLIGRAM
     Route: 048
     Dates: start: 20110622, end: 20111008

REACTIONS (1)
  - MACULAR OEDEMA [None]
